FAERS Safety Report 8319771-7 (Version None)
Quarter: 2012Q2

REPORT INFORMATION
  Report Type: 
  Country: None (occurrence: None)
  Receive Date: 20120427
  Receipt Date: 20100119
  Transmission Date: 20120825
  Serious: No
  Sender: FDA-Public Use
  Company Number: US-TEVA-2009010480

PATIENT
  Sex: Female
  Weight: 38.59 kg

DRUGS (3)
  1. XANAX [Concomitant]
  2. NUVIGIL [Suspect]
     Indication: SOMNOLENCE
     Dosage: 300 MILLIGRAM;
     Route: 048
     Dates: start: 20090610
  3. WELLBUTRIN [Concomitant]

REACTIONS (5)
  - URINARY TRACT INFECTION [None]
  - WEIGHT INCREASED [None]
  - ANXIETY [None]
  - KIDNEY INFECTION [None]
  - SEPSIS [None]
